FAERS Safety Report 5831033-6 (Version None)
Quarter: 2008Q3

REPORT INFORMATION
  Report Type: 
  Country: None (occurrence: None)
  Receive Date: 20080801
  Receipt Date: 20080311
  Transmission Date: 20090109
  Serious: No
  Sender: FDA-Public Use
  Company Number: US-BRISTOL-MYERS SQUIBB COMPANY-14113005

PATIENT

DRUGS (1)
  1. COUMADIN [Suspect]

REACTIONS (6)
  - FATIGUE [None]
  - MALAISE [None]
  - MOOD ALTERED [None]
  - PARAESTHESIA [None]
  - RASH [None]
  - TELANGIECTASIA [None]
